FAERS Safety Report 21805481 (Version 1)
Quarter: 2023Q1

REPORT INFORMATION
  Report Type: Spontaneous
  Country: CA (occurrence: CA)
  Receive Date: 20230102
  Receipt Date: 20230102
  Transmission Date: 20230418
  Serious: Yes (Hospitalization, Other)
  Sender: FDA-Public Use
  Company Number: CA-TEVA-2022-CA-2841082

PATIENT
  Age: 64 Year
  Sex: Male

DRUGS (4)
  1. PREDNISONE [Suspect]
     Active Substance: PREDNISONE
     Indication: Retinal occlusive vasculitis
     Dosage: HIGH-DOSE
     Route: 065
     Dates: start: 202203, end: 202210
  2. PREDNISONE [Suspect]
     Active Substance: PREDNISONE
     Indication: Blindness unilateral
  3. METHOTREXATE SODIUM [Concomitant]
     Active Substance: METHOTREXATE SODIUM
     Indication: Retinal occlusive vasculitis
     Dates: start: 202204, end: 202210
  4. INFLIXIMAB [Concomitant]
     Active Substance: INFLIXIMAB
     Indication: Retinal occlusive vasculitis
     Dosage: INCREASING DOSES UP TO 10 MG/KG EVERY 4 WEEK
     Dates: start: 202206, end: 202211

REACTIONS (4)
  - Diabetes mellitus [Unknown]
  - Delirium [Unknown]
  - Hyperglycaemia [Unknown]
  - Drug intolerance [Unknown]

NARRATIVE: CASE EVENT DATE: 20220101
